FAERS Safety Report 6048392-4 (Version None)
Quarter: 2009Q1

REPORT INFORMATION
  Report Type: 
  Country: None (occurrence: None)
  Receive Date: 20090123
  Receipt Date: 20090122
  Transmission Date: 20090719
  Serious: No
  Sender: FDA-Public Use
  Company Number: A0729278A

PATIENT
  Sex: Female

DRUGS (4)
  1. ZIDOVUDINE [Suspect]
     Indication: HIV INFECTION
     Dosage: 600MG PER DAY
     Route: 048
     Dates: start: 20080201
  2. LAMIVUDINE [Suspect]
     Indication: HIV INFECTION
     Dosage: 300MG PER DAY
     Route: 048
     Dates: start: 20080201
  3. REYATAZ [Concomitant]
     Indication: HIV INFECTION
     Dosage: 300MG PER DAY
     Route: 048
     Dates: start: 20080201
  4. RITONAVIR [Concomitant]
     Indication: HIV INFECTION
     Dosage: 100MG PER DAY
     Route: 048
     Dates: start: 20080201

REACTIONS (2)
  - DRUG EXPOSURE DURING PREGNANCY [None]
  - LIVE BIRTH [None]
